FAERS Safety Report 8605708-X (Version None)
Quarter: 2012Q3

REPORT INFORMATION
  Report Type: 
  Country: None (occurrence: None)
  Receive Date: 20120820
  Receipt Date: 20120816
  Transmission Date: 20120928
  Serious: Yes (Death, Hospitalization, Other)
  Sender: FDA-Public Use
  Company Number: AU-B.I. PHARMACEUTICALS,INC./RIDGEFIELD-2012-AU-01400AU

PATIENT
  Sex: Female

DRUGS (14)
  1. CARVEDILOL [Concomitant]
  2. MONODUR SR [Concomitant]
  3. DILTIAZEM [Concomitant]
  4. NEXIUM [Concomitant]
  5. PRADAXA [Suspect]
     Indication: CEREBROVASCULAR ACCIDENT PROPHYLAXIS
     Dosage: 220 MG
     Dates: start: 20110809
  6. EZETIMIBE [Concomitant]
  7. FUROSEMIDE [Concomitant]
  8. NITROLINGUAL [Concomitant]
  9. ATACAND [Concomitant]
  10. NORSPAN PATCH [Concomitant]
  11. PROGOUT [Concomitant]
  12. SLOW-K [Concomitant]
  13. SYMBICORT [Concomitant]
  14. PRADAXA [Suspect]
     Indication: ATRIAL FIBRILLATION

REACTIONS (2)
  - RENAL FAILURE ACUTE [None]
  - CARDIAC FAILURE [None]
